FAERS Safety Report 4867129-5 (Version None)
Quarter: 2005Q4

REPORT INFORMATION
  Report Type: 
  Country: None (occurrence: None)
  Receive Date: 20051222
  Receipt Date: 20020310
  Transmission Date: 20060501
  Serious: Yes (Death, Hospitalization)
  Sender: FDA-Public Use
  Company Number: HQ4662104NOV1999

PATIENT
  Age: 46 Year
  Sex: Female

DRUGS (2)
  1. GEMTUZUMAB OZOGAMICIN [Suspect]
     Indication: ACUTE MYELOID LEUKAEMIA
     Dosage: 9 MG/M (2) INTRAVENOUS
     Route: 042
     Dates: start: 19990716, end: 19990716
  2. GEMTUZUMAB OZOGAMICIN [Suspect]
     Indication: ACUTE MYELOID LEUKAEMIA
     Dosage: 9 MG/M (2) INTRAVENOUS
     Route: 042
     Dates: start: 19990802, end: 19990802

REACTIONS (6)
  - ACUTE MYELOID LEUKAEMIA [None]
  - DISEASE PROGRESSION [None]
  - HAEMORRHAGE [None]
  - MENOMETRORRHAGIA [None]
  - NEUTROPENIA [None]
  - THROMBOCYTOPENIA [None]
